FAERS Safety Report 7869347-0 (Version None)
Quarter: 2011Q4

REPORT INFORMATION
  Report Type: 
  Country: None (occurrence: None)
  Receive Date: 20111028
  Receipt Date: 20101231
  Transmission Date: 20120403
  Serious: No
  Sender: FDA-Public Use
  Company Number: US-AMGEN-USASP2010008564

PATIENT
  Age: 65 Year
  Sex: Female
  Weight: 156 kg

DRUGS (2)
  1. ENBREL [Suspect]
     Indication: RHEUMATOID ARTHRITIS
     Dosage: 25 MG, 2 TIMES/WK
     Dates: start: 20071029
  2. METHOTREXATE [Concomitant]
     Dates: start: 19900101

REACTIONS (5)
  - RHEUMATOID ARTHRITIS [None]
  - TRIGGER FINGER [None]
  - MENISCUS LESION [None]
  - JOINT DISLOCATION [None]
  - ARTHRALGIA [None]
